FAERS Safety Report 9891518 (Version 3)
Quarter: 2014Q3

REPORT INFORMATION
  Report Type: Spontaneous
  Country: US (occurrence: US)
  Receive Date: 20140212
  Receipt Date: 20140804
  Transmission Date: 20150326
  Serious: No
  Sender: FDA-Public Use
  Company Number: US-THROMBOGENICS INC-JET-2013-350

PATIENT
  Age: 70 Year
  Sex: Female

DRUGS (10)
  1. JETREA [Suspect]
     Active Substance: OCRIPLASMIN
     Indication: VITREOUS ADHESIONS
     Dosage: 0.1 ML, ONE TIME DOSE
     Route: 031
     Dates: start: 20130911, end: 20130911
  2. RAMIPRIL. [Concomitant]
     Active Substance: RAMIPRIL
  3. AMARYL [Concomitant]
     Active Substance: GLIMEPIRIDE
  4. METOPROLOL [Concomitant]
     Active Substance: METOPROLOL
     Indication: HYPERTENSION
     Dosage: UNK
  5. METFORMIN [Concomitant]
     Active Substance: METFORMIN HYDROCHLORIDE
     Indication: DIABETES MELLITUS
     Dosage: UNK
  6. SIMVASTIN [Concomitant]
     Active Substance: SIMVASTATIN
     Indication: HYPERCHOLESTEROLAEMIA
     Dosage: UNK
  7. GLIMEPIRIDE. [Concomitant]
     Active Substance: GLIMEPIRIDE
     Indication: DIABETES MELLITUS
     Dosage: UNK
  8. PLAQUENIL [Concomitant]
     Active Substance: HYDROXYCHLOROQUINE SULFATE
     Indication: SARCOIDOSIS
     Dosage: UNK
  9. DESIPRAMINE [Concomitant]
     Active Substance: DESIPRAMINE
  10. PROVENTIL                          /00139501/ [Concomitant]

REACTIONS (16)
  - Photopsia [Recovered/Resolved]
  - Eye pain [Recovered/Resolved]
  - Colour vision tests abnormal [Recovered/Resolved]
  - Eye inflammation [Recovered/Resolved]
  - Retinogram abnormal [Recovered/Resolved]
  - Visual acuity reduced transiently [Recovered/Resolved]
  - Vitreous floaters [Recovered/Resolved]
  - Photophobia [Recovered/Resolved]
  - Ocular hyperaemia [Recovered/Resolved]
  - Anterior chamber cell [Recovered/Resolved]
  - Night blindness [Recovered/Resolved]
  - Iritis [Recovered/Resolved]
  - Visual field defect [Recovered/Resolved]
  - Night blindness [Recovered/Resolved]
  - Chromatopsia [Recovered/Resolved]
  - Vision blurred [Recovered/Resolved]

NARRATIVE: CASE EVENT DATE: 20130912
